FAERS Safety Report 9213779 (Version 2)
Quarter: 2013Q4

REPORT INFORMATION
  Report Type: Spontaneous
  Country: US (occurrence: US)
  Receive Date: 20130405
  Receipt Date: 20131112
  Transmission Date: 20140711
  Serious: Yes (Other)
  Sender: FDA-Public Use
  Company Number: US-BAYER-2013-040336

PATIENT
  Age: 24 Year
  Sex: Female

DRUGS (8)
  1. YAZ [Suspect]
     Dosage: UNK
     Route: 048
     Dates: start: 2006, end: 2009
  2. YASMIN [Suspect]
     Dosage: UNK
     Route: 048
     Dates: start: 2006, end: 2009
  3. OCELLA [Suspect]
     Dosage: UNK
     Dates: start: 2006, end: 2009
  4. CYCLOBENZAPRINE [Concomitant]
     Dosage: 10 MG, UNK
     Route: 048
  5. TRAMADOL [Concomitant]
     Dosage: 50 MG, UNK
     Route: 048
  6. DICYCLOMINE [Concomitant]
     Dosage: 20 MG, UNK
     Route: 048
  7. PROMETHAZINE [Concomitant]
     Dosage: 25 MG, UNK
  8. HYDROCODONE W/APAP [Concomitant]
     Dosage: 5-500MG
     Route: 048

REACTIONS (9)
  - Cholelithiasis [None]
  - Cholecystitis chronic [None]
  - Abdominal pain [None]
  - Injury [None]
  - Emotional distress [None]
  - Pain [None]
  - General physical health deterioration [None]
  - Anxiety [None]
  - Pain [None]
